FAERS Safety Report 9476814 (Version 2)
Quarter: 2013Q3

REPORT INFORMATION
  Report Type: Report from Study
  Country: US (occurrence: US)
  Receive Date: 20130826
  Receipt Date: 20130826
  Transmission Date: 20140515
  Serious: Yes (Other)
  Sender: FDA-Public Use
  Company Number: US-ROCHE-1172205

PATIENT
  Age: 56 Year
  Sex: Female

DRUGS (11)
  1. PEGASYS [Suspect]
     Indication: HEPATITIS C
     Route: 058
     Dates: start: 20121030, end: 201305
  2. PEGASYS [Suspect]
     Route: 065
     Dates: start: 2008
  3. RIBAVIRIN [Suspect]
     Indication: CHRONIC HEPATITIS C
     Route: 048
     Dates: start: 2008
  4. RIBAVIRIN [Suspect]
     Route: 048
     Dates: start: 20121030, end: 201305
  5. RIBASPHERE [Suspect]
     Indication: HEPATITIS C
     Route: 065
     Dates: start: 20121103, end: 20130426
  6. RIBASPHERE [Suspect]
     Route: 065
  7. PROCRIT [Suspect]
     Indication: HAEMOGLOBIN DECREASED
     Route: 065
     Dates: start: 20130208, end: 20130321
  8. INCIVEK [Suspect]
     Indication: CHRONIC HEPATITIS C
     Dosage: 375GX2
     Route: 048
     Dates: start: 20121030, end: 201301
  9. INCIVEK [Suspect]
     Route: 065
     Dates: start: 20121103, end: 20130123
  10. AMBIEN [Concomitant]
  11. ZANAFLEX [Concomitant]

REACTIONS (14)
  - Pruritus [Recovered/Resolved]
  - Rash [Recovered/Resolved]
  - Stomatitis [Recovered/Resolved]
  - Anaemia [Recovered/Resolved]
  - Haemoglobin decreased [Unknown]
  - Lip swelling [Unknown]
  - Swelling face [Unknown]
  - Asthenia [Unknown]
  - Abasia [Unknown]
  - Dyspnoea [Unknown]
  - Candida infection [Unknown]
  - Muscle spasms [Unknown]
  - Bone pain [Unknown]
  - Weight decreased [Unknown]
